FAERS Safety Report 6667141-X (Version None)
Quarter: 2010Q2

REPORT INFORMATION
  Report Type: 
  Country: None (occurrence: None)
  Receive Date: 20100405
  Receipt Date: 20100325
  Transmission Date: 20101027
  Serious: Yes (Other)
  Sender: FDA-Public Use
  Company Number: DE-JNJFOC-20100308233

PATIENT
  Sex: Male

DRUGS (1)
  1. TAVANIC [Suspect]
     Indication: SINUSITIS
     Route: 048

REACTIONS (1)
  - PANIC ATTACK [None]
